FAERS Safety Report 13616916 (Version 1)
Quarter: 2017Q2

REPORT INFORMATION
  Report Type: Spontaneous
  Country: US (occurrence: US)
  Receive Date: 20170606
  Receipt Date: 20170606
  Transmission Date: 20170830
  Serious: Yes (Life-Threatening)
  Sender: FDA-Public Use
  Company Number: US-SA-2016SA129758

PATIENT
  Age: 73 Year
  Sex: Female

DRUGS (6)
  1. LANTUS SOLOSTAR [Suspect]
     Active Substance: INSULIN GLARGINE
     Indication: DIABETES MELLITUS
     Dosage: 26-27 UNITS
     Route: 065
     Dates: start: 2005
  2. LANTUS SOLOSTAR [Suspect]
     Active Substance: INSULIN GLARGINE
     Indication: DIABETES MELLITUS
     Dosage: DOSE:6 UNIT(S)
     Route: 065
     Dates: start: 20160711, end: 20160711
  3. LANTUS SOLOSTAR [Suspect]
     Active Substance: INSULIN GLARGINE
     Indication: DIABETES MELLITUS
     Dosage: DOSE:26 UNIT(S)
     Route: 065
     Dates: start: 20160712
  4. SOLOSTAR [Concomitant]
     Active Substance: DEVICE
     Dates: start: 201607, end: 201607
  5. SOLOSTAR [Concomitant]
     Active Substance: DEVICE
     Dates: start: 201607
  6. SOLOSTAR [Concomitant]
     Active Substance: DEVICE
     Dates: start: 2005

REACTIONS (4)
  - Hypoglycaemia [Unknown]
  - Loss of consciousness [Unknown]
  - Blood glucose increased [Unknown]
  - Hyperhidrosis [Unknown]

NARRATIVE: CASE EVENT DATE: 20160712
